FAERS Safety Report 11257299 (Version 1)
Quarter: 2015Q3

REPORT INFORMATION
  Report Type: Spontaneous
  Country: IT (occurrence: IT)
  Receive Date: 20150709
  Receipt Date: 20150709
  Transmission Date: 20151125
  Serious: Yes (Hospitalization)
  Sender: FDA-Public Use
  Company Number: IT-ROCHE-1320805

PATIENT
  Age: 58 Year
  Sex: Female
  Weight: 70 kg

DRUGS (2)
  1. MABTHERA [Suspect]
     Active Substance: RITUXIMAB
     Indication: CHRONIC LYMPHOCYTIC LEUKAEMIA
     Route: 041
     Dates: start: 20130618, end: 20130910
  2. LITAK [Suspect]
     Active Substance: CLADRIBINE
     Indication: CHRONIC LYMPHOCYTIC LEUKAEMIA
     Dosage: 2 MG/ML 5 ML VIAL (GLASS) 5 VIALS
     Route: 058
     Dates: start: 20130618, end: 20130910

REACTIONS (6)
  - Neutropenia [Recovered/Resolved with Sequelae]
  - Hypogammaglobulinaemia [Recovered/Resolved with Sequelae]
  - Epistaxis [Recovering/Resolving]
  - Pneumonia [Recovered/Resolved with Sequelae]
  - Immune thrombocytopenic purpura [Recovering/Resolving]
  - Pyrexia [Recovered/Resolved]

NARRATIVE: CASE EVENT DATE: 20130927
